FAERS Safety Report 8396653-6 (Version None)
Quarter: 2012Q2

REPORT INFORMATION
  Report Type: 
  Country: None (occurrence: None)
  Receive Date: 20120530
  Receipt Date: 20120517
  Transmission Date: 20120825
  Serious: No
  Sender: FDA-Public Use
  Company Number: US-ASTRAZENECA-2012SE31721

PATIENT
  Age: 87 Year
  Sex: Female
  Weight: 70.3 kg

DRUGS (11)
  1. SYNTHROID [Concomitant]
     Indication: HYPOTHYROIDISM
     Route: 048
  2. EPIDURAL SHOTS [Concomitant]
     Indication: SPINAL COLUMN STENOSIS
  3. LEVOTHYROXINE SODIUM [Concomitant]
     Indication: THYROID DISORDER
  4. AMLODIPINE BESYLATE [Concomitant]
  5. NEXIUM [Suspect]
     Indication: DYSPEPSIA
     Route: 048
     Dates: start: 20120512
  6. NEXIUM [Suspect]
     Indication: GASTROOESOPHAGEAL REFLUX DISEASE
     Route: 048
     Dates: start: 20120512
  7. TRAMADOL HCL [Concomitant]
     Indication: SPINAL COLUMN STENOSIS
  8. PRILOSEC [Suspect]
     Indication: GASTROOESOPHAGEAL REFLUX DISEASE
     Route: 048
  9. GAVISCON [Concomitant]
     Indication: GASTROOESOPHAGEAL REFLUX DISEASE
  10. INDAPAMIDE [Concomitant]
  11. ARTHROTEC [Concomitant]
     Indication: ARTHRITIS

REACTIONS (5)
  - APHAGIA [None]
  - SLEEP DISORDER DUE TO GENERAL MEDICAL CONDITION, INSOMNIA TYPE [None]
  - URTICARIA [None]
  - DRUG INEFFECTIVE [None]
  - DYSPEPSIA [None]
